FAERS Safety Report 21383699 (Version 1)
Quarter: 2022Q3

REPORT INFORMATION
  Report Type: Spontaneous
  Country: AR (occurrence: AR)
  Receive Date: 20220928
  Receipt Date: 20220928
  Transmission Date: 20221027
  Serious: Yes (Other)
  Sender: FDA-Public Use
  Company Number: AR-SUN PHARMACEUTICAL INDUSTRIES LTD-2022R1-356457

PATIENT
  Sex: Female
  Weight: 2 kg

DRUGS (7)
  1. ACENOCOUMAROL [Suspect]
     Active Substance: ACENOCOUMAROL
     Indication: Renal vascular thrombosis
     Dosage: UNK
     Route: 064
  2. ERYTHROPOIETIN [Suspect]
     Active Substance: ERYTHROPOIETIN
     Indication: Haemoglobin decreased
     Dosage: 8000 INTERNATIONAL UNIT, WEEKLY
     Route: 064
  3. FOLIC ACID [Suspect]
     Active Substance: FOLIC ACID
     Indication: Supplementation therapy
     Dosage: UNK
     Route: 064
  4. VITAMIN B COMPLEX [Suspect]
     Active Substance: CYANOCOBALAMIN\DEXPANTHENOL\NIACINAMIDE\PYRIDOXINE HYDROCHLORIDE\RIBOFLAVIN 5^-PHOSPHATE SODIUM\THIA
     Indication: Supplementation therapy
     Dosage: UNK
     Route: 064
  5. HEPARIN [Suspect]
     Active Substance: HEPARIN SODIUM
     Dosage: UNK (7000 UI/SESSION)
     Route: 064
  6. HEPARIN [Suspect]
     Active Substance: HEPARIN SODIUM
     Indication: Renal vascular thrombosis
  7. HEPARIN [Suspect]
     Active Substance: HEPARIN SODIUM

REACTIONS (4)
  - Foetal exposure during pregnancy [Unknown]
  - Premature baby [Unknown]
  - Heart rate irregular [Unknown]
  - Low birth weight baby [Unknown]
